FAERS Safety Report 21072984 (Version 2)
Quarter: 2022Q3

REPORT INFORMATION
  Report Type: Report from Study
  Country: US (occurrence: US)
  Receive Date: 20220712
  Receipt Date: 20220810
  Transmission Date: 20221027
  Serious: No
  Sender: FDA-Public Use
  Company Number: US-SA-SAC20220711000279

PATIENT
  Age: 63 Year
  Sex: Female

DRUGS (15)
  1. DUPIXENT [Suspect]
     Active Substance: DUPILUMAB
     Indication: Dermatitis atopic
     Dosage: 600 MG, 1X
     Route: 058
     Dates: start: 20220127, end: 20220127
  2. DUPIXENT [Suspect]
     Active Substance: DUPILUMAB
     Dosage: 300 MG, QOW
     Route: 058
     Dates: start: 2022
  3. POTASSIUM [Concomitant]
     Active Substance: POTASSIUM
     Dosage: 250MG
  4. FLAXSEED [Concomitant]
     Active Substance: FLAX SEED
     Dosage: 250MG
  5. FISH OIL [Concomitant]
     Active Substance: FISH OIL
     Dosage: 3001000MG
  6. COLLAGEN [Concomitant]
     Active Substance: COLLAGEN
     Dosage: 3001000MG
  7. CALCIUM CITRATE [Concomitant]
     Active Substance: CALCIUM CITRATE
  8. ASCORBIC ACID [Concomitant]
     Active Substance: ASCORBIC ACID
     Dosage: 81MG
  9. ASPIRIN [Concomitant]
     Active Substance: ASPIRIN
     Dosage: 81MG
  10. NITROFURANTOIN [Concomitant]
     Active Substance: NITROFURANTOIN
     Dosage: 250MG
  11. CIPROFLOXACIN [Concomitant]
     Active Substance: CIPROFLOXACIN
     Dosage: 250MG
  12. TRIAMCINOLONE ACETONIDE [Concomitant]
     Active Substance: TRIAMCINOLONE ACETONIDE
     Dosage: 10MG
  13. LISINOPRIL [Concomitant]
     Active Substance: LISINOPRIL
     Dosage: 25MG
  14. LETROZOLE [Concomitant]
     Active Substance: LETROZOLE
     Dosage: 10MG
  15. ATORVASTATIN CALCIUM [Concomitant]
     Active Substance: ATORVASTATIN CALCIUM
     Dosage: 25MG

REACTIONS (2)
  - COVID-19 [Unknown]
  - Inappropriate schedule of product administration [Unknown]

NARRATIVE: CASE EVENT DATE: 20220101
